FAERS Safety Report 9090565 (Version 1)
Quarter: 2013Q1

REPORT INFORMATION
  Report Type: Report from Study
  Country: US (occurrence: US)
  Receive Date: 20130201
  Receipt Date: 20130201
  Transmission Date: 20140127
  Serious: No
  Sender: FDA-Public Use
  Company Number: US-ABBOTT-12P-163-1019456-00

PATIENT
  Sex: Female

DRUGS (3)
  1. HUMIRA [Suspect]
     Indication: COLITIS ULCERATIVE
     Dosage: 160MG ON DAY 1
     Route: 058
     Dates: start: 201211, end: 201211
  2. HUMIRA [Suspect]
     Dosage: 80MG ON DAY 15
     Route: 058
  3. HUMIRA [Suspect]
     Route: 058

REACTIONS (1)
  - Arthralgia [Not Recovered/Not Resolved]
